FAERS Safety Report 17580210 (Version 2)
Quarter: 2020Q1

REPORT INFORMATION
  Report Type: Report from Study
  Country: None (occurrence: US)
  Receive Date: 20200325
  Receipt Date: 20200327
  Transmission Date: 20200409
  Serious: Yes (Other)
  Sender: FDA-Public Use
  Company Number: US-BIOVITRUM-2020US1325

PATIENT
  Age: 38 Year
  Sex: Female

DRUGS (1)
  1. KINERET [Suspect]
     Active Substance: ANAKINRA
     Indication: STILL^S DISEASE
     Route: 058
     Dates: start: 20190523

REACTIONS (37)
  - Serum ferritin increased [Unknown]
  - Eye pruritus [Unknown]
  - Hypersensitivity [Unknown]
  - Hypoaesthesia [Unknown]
  - Contusion [Unknown]
  - Off label use [Not Recovered/Not Resolved]
  - Neck pain [Unknown]
  - Tenderness [Unknown]
  - Product dose omission [Unknown]
  - Paranasal sinus discomfort [Unknown]
  - Musculoskeletal stiffness [Unknown]
  - Paraesthesia [Unknown]
  - Musculoskeletal pain [Unknown]
  - Fatigue [Unknown]
  - Sleep disorder [Unknown]
  - Abdominal pain [Unknown]
  - Myalgia [Unknown]
  - Disturbance in attention [Unknown]
  - Headache [Unknown]
  - Rash [Unknown]
  - Haemorrhage [Unknown]
  - Pain [Unknown]
  - Insomnia [Unknown]
  - Rhinorrhoea [Unknown]
  - Peripheral swelling [Unknown]
  - Arthralgia [Unknown]
  - Dizziness [Unknown]
  - Mean cell haemoglobin concentration increased [Unknown]
  - Memory impairment [Unknown]
  - Unevaluable event [Unknown]
  - Chills [Unknown]
  - Ear pain [Unknown]
  - Asthenia [Unknown]
  - Anion gap decreased [Unknown]
  - Stress [Unknown]
  - Ocular hyperaemia [Unknown]
  - Confusional state [Unknown]

NARRATIVE: CASE EVENT DATE: 20190523
